FAERS Safety Report 6618659-7 (Version None)
Quarter: 2010Q1

REPORT INFORMATION
  Report Type: 
  Country: None (occurrence: None)
  Receive Date: 20100305
  Receipt Date: 20100305
  Transmission Date: 20100710
  Serious: Yes (Other)
  Sender: FDA-Public Use
  Company Number: None

PATIENT
  Age: 64 Year
  Sex: Female
  Weight: 63.5036 kg

DRUGS (3)
  1. FOSAMAX PLUS D [Suspect]
     Indication: BONE DENSITY DECREASED
     Dosage: 1 WEEK
     Dates: start: 20081201
  2. FOSAMAX PLUS D [Suspect]
     Indication: BONE DENSITY DECREASED
     Dosage: 1 WEEK
     Dates: start: 20100201
  3. SIMVASTATIN [Suspect]
     Indication: BLOOD CHOLESTEROL INCREASED
     Dosage: 1 NIGHT
     Dates: start: 20091201, end: 20100201

REACTIONS (6)
  - ASTHENIA [None]
  - BONE DISORDER [None]
  - LOSS OF CONTROL OF LEGS [None]
  - MIDDLE INSOMNIA [None]
  - MUSCULOSKELETAL STIFFNESS [None]
  - PAIN [None]
